FAERS Safety Report 19254637 (Version 1)
Quarter: 2021Q2

REPORT INFORMATION
  Report Type: Spontaneous
  Country: US (occurrence: US)
  Receive Date: 20210513
  Receipt Date: 20210513
  Transmission Date: 20210717
  Serious: Yes (Hospitalization)
  Sender: FDA-Public Use
  Company Number: US-MYLANLABS-2021M1027860

PATIENT
  Age: 91 Year
  Sex: Female

DRUGS (2)
  1. AMITRIPTYLINE [Suspect]
     Active Substance: AMITRIPTYLINE
     Indication: NEUROPATHY PERIPHERAL
     Dosage: UNK
     Route: 065
  2. AMITRIPTYLINE [Suspect]
     Active Substance: AMITRIPTYLINE
     Indication: CYSTITIS INTERSTITIAL

REACTIONS (7)
  - Hydronephrosis [Recovering/Resolving]
  - Urinary retention [Recovered/Resolved]
  - Hydroureter [Recovering/Resolving]
  - Incorrect dosage administered [Recovering/Resolving]
  - Overdose [Recovering/Resolving]
  - Bladder dilatation [Recovering/Resolving]
  - Acute kidney injury [Recovering/Resolving]
